FAERS Safety Report 21669636 (Version 4)
Quarter: 2022Q4

REPORT INFORMATION
  Report Type: Report from Study
  Country: US (occurrence: US)
  Receive Date: 20221201
  Receipt Date: 20221224
  Transmission Date: 20230113
  Serious: Yes (Hospitalization, Other)
  Sender: FDA-Public Use
  Company Number: US-002147023-NVSC2022US279562

PATIENT
  Sex: Male

DRUGS (2)
  1. ENTRESTO [Suspect]
     Active Substance: SACUBITRIL\VALSARTAN
     Indication: Product used for unknown indication
     Dosage: 2 DOSAGE FORM
     Route: 065
  2. ENTRESTO [Suspect]
     Active Substance: SACUBITRIL\VALSARTAN
     Dosage: 1.5 DOSAGE FORM, QD (24 MG (STRENGTH: 24/26 MG) (1/2 AM AND 1 PM)
     Route: 065

REACTIONS (5)
  - COVID-19 [Recovering/Resolving]
  - Ascites [Unknown]
  - Decreased activity [Unknown]
  - Dizziness [Unknown]
  - Wrong technique in product usage process [Unknown]
